FAERS Safety Report 8907058 (Version 1)
Quarter: 2012Q4

REPORT INFORMATION
  Report Type: 
  Country: IN (occurrence: IN)
  Receive Date: 20121114
  Receipt Date: 20121114
  Transmission Date: 20130627
  Serious: Yes (Death, Hospitalization)
  Sender: FDA-Public Use
  Company Number: IN-SANOFI-AVENTIS-2012SA081298

PATIENT
  Age: 52 Year
  Sex: Male

DRUGS (4)
  1. ISONIAZID [Suspect]
     Indication: PULMONARY TUBERCULOSIS
     Route: 065
  2. RIFAMPICIN [Suspect]
     Indication: PULMONARY TUBERCULOSIS
     Route: 065
  3. PYRAZINAMIDE [Suspect]
     Indication: PULMONARY TUBERCULOSIS
     Route: 065
  4. ETHAMBUTOL [Suspect]
     Indication: PULMONARY TUBERCULOSIS
     Route: 065

REACTIONS (14)
  - Acute hepatic failure [Fatal]
  - Jaundice [Fatal]
  - Prothrombin time prolonged [Fatal]
  - International normalised ratio increased [Fatal]
  - Blood bilirubin increased [Fatal]
  - Bilirubin conjugated increased [Fatal]
  - Alanine aminotransferase increased [Fatal]
  - Aspartate aminotransferase increased [Fatal]
  - Ascites [Fatal]
  - Encephalopathy [Fatal]
  - Altered state of consciousness [Fatal]
  - Brain oedema [Fatal]
  - Respiratory failure [Fatal]
  - Cardiac arrest [Fatal]
